FAERS Safety Report 22262401 (Version 2)
Quarter: 2025Q3

REPORT INFORMATION
  Report Type: Report from Study
  Country: US (occurrence: US)
  Receive Date: 20230428
  Receipt Date: 20250717
  Transmission Date: 20251021
  Serious: Yes (Other)
  Sender: ABBVIE
  Company Number: US-ABBVIE-4745062

PATIENT
  Age: 81 Year
  Sex: Female

DRUGS (2)
  1. RINVOQ [Suspect]
     Active Substance: UPADACITINIB
     Indication: Rheumatoid arthritis
     Route: 048
     Dates: start: 20210106
  2. RINVOQ [Suspect]
     Active Substance: UPADACITINIB
     Indication: Rheumatoid arthritis
     Route: 048

REACTIONS (6)
  - Concussion [Unknown]
  - Rheumatoid arthritis [Not Recovered/Not Resolved]
  - Head injury [Unknown]
  - Fall [Recovering/Resolving]
  - Hip fracture [Unknown]
  - Pain [Unknown]

NARRATIVE: CASE EVENT DATE: 20230325
